FAERS Safety Report 4492111-X (Version None)
Quarter: 2004Q3

REPORT INFORMATION
  Report Type: 
  Country: None (occurrence: None)
  Receive Date: 20040924
  Receipt Date: 20031111
  Transmission Date: 20050211
  Serious: No
  Sender: FDA-Public Use
  Company Number: 03P-163-0213474-00

PATIENT
  Age: 35 Year
  Sex: Male
  Weight: 81.6475 kg

DRUGS (6)
  1. KALETRA [Suspect]
     Dates: start: 20010313, end: 20021129
  2. RO-29-9800 (T-20 FUSION INHIBITOR) [Suspect]
     Dosage: 90 MG, 2 IN 1 D, SUBCUTANEOUS
     Route: 058
     Dates: start: 20010313, end: 20021129
  3. LAMIVUDINE [Concomitant]
  4. AMPRENAVIR [Concomitant]
  5. GEMFIBROZIL [Concomitant]
  6. TESTOSTERONE [Concomitant]

REACTIONS (1)
  - BLOOD CREATINE PHOSPHOKINASE INCREASED [None]
